FAERS Safety Report 9007557 (Version 1)
Quarter: 2013Q1

REPORT INFORMATION
  Report Type: Spontaneous
  Country: US (occurrence: US)
  Receive Date: 20130111
  Receipt Date: 20130111
  Transmission Date: 20140127
  Serious: Yes (Other)
  Sender: FDA-Public Use
  Company Number: US-009507513-0907USA03692

PATIENT
  Age: 36 Month
  Sex: Male
  Weight: 13.61 kg

DRUGS (1)
  1. SINGULAIR [Suspect]
     Indication: ABNORMAL BEHAVIOUR
     Dosage: 4 MG, HS
     Route: 048
     Dates: start: 20080925, end: 20081020

REACTIONS (2)
  - Abnormal behaviour [Recovered/Resolved]
  - Off label use [Unknown]
